FAERS Safety Report 14233177 (Version 2)
Quarter: 2017Q4

REPORT INFORMATION
  Report Type: Report from Study
  Country: DE (occurrence: DE)
  Receive Date: 20171129
  Receipt Date: 20171228
  Transmission Date: 20180321
  Serious: Yes (Other)
  Sender: FDA-Public Use
  Company Number: DE-BIOGEN-2017BI00489198

PATIENT
  Sex: Female

DRUGS (1)
  1. AVONEX [Suspect]
     Active Substance: INTERFERON BETA-1A
     Indication: MULTIPLE SCLEROSIS
     Route: 065
     Dates: start: 2006, end: 2007

REACTIONS (2)
  - Crohn^s disease [Not Recovered/Not Resolved]
  - Deafness permanent [Not Recovered/Not Resolved]

NARRATIVE: CASE EVENT DATE: 2006
